FAERS Safety Report 4880692-3 (Version None)
Quarter: 2006Q1

REPORT INFORMATION
  Report Type: 
  Country: None (occurrence: None)
  Receive Date: 20060113
  Receipt Date: 20051004
  Transmission Date: 20060701
  Serious: Yes (Hospitalization, Other)
  Sender: FDA-Public Use
  Company Number: US-MERCK-0510USA03870

PATIENT
  Age: 65 Year
  Sex: Female
  Weight: 95 kg

DRUGS (10)
  1. VIOXX [Suspect]
     Indication: ARTHRITIS
     Route: 048
     Dates: start: 19990601, end: 20041001
  2. VIOXX [Suspect]
     Indication: PAIN
     Route: 048
     Dates: start: 19990601, end: 20041001
  3. CELEBREX [Concomitant]
     Indication: ARTHRITIS
     Route: 065
     Dates: start: 20010101
  4. LITHIUM ACETATE [Concomitant]
     Indication: DEPRESSION
     Route: 065
  5. PLAVIX [Concomitant]
     Indication: PROPHYLAXIS
     Route: 065
     Dates: start: 20020101
  6. HYDROCODONE BITARTRATE [Concomitant]
     Indication: PAIN
     Route: 065
     Dates: start: 19990101
  7. LORTAB [Concomitant]
     Indication: PAIN
     Route: 065
     Dates: start: 19990101
  8. CLONIDINE [Concomitant]
     Indication: HYPERTENSION
     Route: 065
     Dates: start: 20020101
  9. NITROGLYCERIN [Concomitant]
     Indication: CHEST PAIN
     Route: 065
     Dates: start: 19990101, end: 20050101
  10. NITROGLYCERIN [Concomitant]
     Indication: ANGINA PECTORIS
     Route: 065
     Dates: start: 19990101, end: 20050101

REACTIONS (11)
  - CARDIOVASCULAR DISORDER [None]
  - CEREBROVASCULAR ACCIDENT [None]
  - CHEST PAIN [None]
  - DEEP VEIN THROMBOSIS [None]
  - GASTRIC DISORDER [None]
  - HAEMATOCHEZIA [None]
  - HEART RATE IRREGULAR [None]
  - RENAL DISORDER [None]
  - RENAL FAILURE [None]
  - RHEUMATOID ARTHRITIS [None]
  - TRANSIENT ISCHAEMIC ATTACK [None]
